FAERS Safety Report 9048846 (Version 1)
Quarter: 2013Q1

REPORT INFORMATION
  Report Type: Spontaneous
  Country: US (occurrence: None)
  Receive Date: 20130130
  Receipt Date: 20130130
  Transmission Date: 20140127
  Serious: Yes (Other)
  Sender: FDA-Public Use
  Company Number: None

PATIENT
  Sex: Male
  Weight: 72.73 kg

DRUGS (3)
  1. BEVACIZUMAB [Suspect]
  2. IRINOTECAN [Suspect]
  3. OXALIPLATIN [Suspect]

REACTIONS (3)
  - Diarrhoea [None]
  - Dehydration [None]
  - Inflammatory bowel disease [None]
